FAERS Safety Report 24532943 (Version 1)
Quarter: 2024Q4

REPORT INFORMATION
  Report Type: Spontaneous
  Country: US (occurrence: US)
  Receive Date: 20241022
  Receipt Date: 20241022
  Transmission Date: 20250115
  Serious: No
  Sender: BRISTOL-MYERS SQUIBB COMPANY
  Company Number: US-BRISTOL-MYERS SQUIBB COMPANY-2024-165892

PATIENT
  Age: 90 Year
  Sex: Female
  Weight: 43.09 kg

DRUGS (1)
  1. REVLIMID [Suspect]
     Active Substance: LENALIDOMIDE
     Indication: Plasma cell myeloma
     Route: 048
     Dates: start: 20240801

REACTIONS (5)
  - Muscle spasms [Recovering/Resolving]
  - Loss of personal independence in daily activities [Recovering/Resolving]
  - Weight gain poor [Recovering/Resolving]
  - Pain [Recovered/Resolved]
  - Condition aggravated [Recovering/Resolving]
